FAERS Safety Report 5197323-8 (Version None)
Quarter: 2006Q4

REPORT INFORMATION
  Report Type: 
  Country: None (occurrence: None)
  Receive Date: 20061228
  Receipt Date: 20061219
  Transmission Date: 20070319
  Serious: Yes (Hospitalization)
  Sender: FDA-Public Use
  Company Number: T200601470

PATIENT
  Age: 36 Year
  Sex: Female

DRUGS (1)
  1. OPTIRAY 300 [Suspect]
     Indication: COMPUTERISED TOMOGRAM THORAX
     Dosage: 100 ML, SINGLE, INTRAVENOUS
     Route: 042
     Dates: start: 20061214, end: 20061214

REACTIONS (6)
  - ERYTHEMA [None]
  - HYPERTENSION [None]
  - OEDEMA [None]
  - RESTLESSNESS [None]
  - TACHYCARDIA [None]
  - THROAT IRRITATION [None]
